FAERS Safety Report 5745188-5 (Version None)
Quarter: 2008Q2

REPORT INFORMATION
  Report Type: 
  Country: None (occurrence: None)
  Receive Date: 20080521
  Receipt Date: 20080521
  Transmission Date: 20081010
  Serious: Yes (Hospitalization)
  Sender: FDA-Public Use
  Company Number: A0728970A

PATIENT
  Age: 30 Year
  Sex: Female

DRUGS (1)
  1. ALLI [Suspect]
     Indication: WEIGHT LOSS DIET
     Route: 048
     Dates: start: 20080419, end: 20080515

REACTIONS (3)
  - ABDOMINAL PAIN [None]
  - APPENDICITIS [None]
  - BACTERIAL INFECTION [None]
